FAERS Safety Report 5953232-5 (Version None)
Quarter: 2008Q4

REPORT INFORMATION
  Report Type: 
  Country: None (occurrence: None)
  Receive Date: 20081114
  Receipt Date: 20081104
  Transmission Date: 20090506
  Serious: Yes (Hospitalization, Other)
  Sender: FDA-Public Use
  Company Number: US-ROCHE-595045

PATIENT
  Sex: Female
  Weight: 86.2 kg

DRUGS (1)
  1. CAPECITABINE [Suspect]
     Indication: BREAST CANCER
     Route: 048

REACTIONS (2)
  - ILL-DEFINED DISORDER [None]
  - METASTASES TO LIVER [None]
